FAERS Safety Report 11561303 (Version 1)
Quarter: 2015Q3

REPORT INFORMATION
  Report Type: Spontaneous
  Country: US (occurrence: US)
  Receive Date: 20150916
  Receipt Date: 20150916
  Transmission Date: 20151125
  Serious: No
  Sender: FDA-Public Use
  Company Number: US-ELI_LILLY_AND_COMPANY-US200810006006

PATIENT
  Age: 54 Year
  Sex: Male

DRUGS (21)
  1. ABILIFY [Concomitant]
     Active Substance: ARIPIPRAZOLE
  2. CRESTOR [Concomitant]
     Active Substance: ROSUVASTATIN CALCIUM
  3. OMEGA 3 [Concomitant]
     Active Substance: OMEGA-3 FATTY ACIDS
  4. CALCIUM [Concomitant]
     Active Substance: CALCIUM
  5. DOXYCYCLINE. [Concomitant]
     Active Substance: DOXYCYCLINE
  6. NEXIUM [Concomitant]
     Active Substance: ESOMEPRAZOLE MAGNESIUM
  7. VITAMINS NOS [Concomitant]
     Active Substance: VITAMINS
  8. SYMBICORT [Concomitant]
     Active Substance: BUDESONIDE\FORMOTEROL FUMARATE DIHYDRATE
  9. BUSPIRONE [Concomitant]
     Active Substance: BUSPIRONE HYDROCHLORIDE
  10. LISINOPRIL. [Concomitant]
     Active Substance: LISINOPRIL
  11. SINGULAIR [Concomitant]
     Active Substance: MONTELUKAST SODIUM
  12. PANADOL [Concomitant]
     Active Substance: ACETAMINOPHEN
  13. FORTEO [Suspect]
     Active Substance: TERIPARATIDE
     Dates: start: 200602, end: 200802
  14. CHROMIUM PICOLINATE [Concomitant]
     Active Substance: CHROMIUM PICOLINATE
  15. VITAMIN D [Concomitant]
     Active Substance: CHOLECALCIFEROL
  16. BAYER ASPIRIN [Concomitant]
     Active Substance: ASPIRIN
  17. MUCINEX [Concomitant]
     Active Substance: GUAIFENESIN
  18. NASONEX [Concomitant]
     Active Substance: MOMETASONE FUROATE
  19. CEFAZOLIN [Concomitant]
     Active Substance: CEFAZOLIN
  20. LORATADINE. [Concomitant]
     Active Substance: LORATADINE
  21. METFORMIN [Concomitant]
     Active Substance: METFORMIN HYDROCHLORIDE

REACTIONS (2)
  - Unevaluable event [Not Recovered/Not Resolved]
  - Fracture nonunion [Not Recovered/Not Resolved]

NARRATIVE: CASE EVENT DATE: 200810
